FAERS Safety Report 6239578-4 (Version None)
Quarter: 2009Q2

REPORT INFORMATION
  Report Type: 
  Country: None (occurrence: None)
  Receive Date: 20090619
  Receipt Date: 20090604
  Transmission Date: 20091009
  Serious: Yes (Hospitalization)
  Sender: FDA-Public Use
  Company Number: TCI2009A01402

PATIENT
  Age: 70 Year
  Sex: Male

DRUGS (8)
  1. ACTOS [Suspect]
     Indication: DIABETES MELLITUS
     Dosage: 15 MG (15 MG, 1 IN 1 D) PER ORAL
     Route: 048
     Dates: start: 20051128, end: 20090420
  2. ACTOS [Suspect]
     Indication: DIABETES MELLITUS
     Dosage: 15 MG (15 MG, 1 IN 1 D) PER ORAL
     Route: 048
     Dates: start: 20090525
  3. CANDESARTAN CILEXETIL [Concomitant]
  4. LIPITOR [Concomitant]
  5. TENORMIN [Concomitant]
  6. TRICHLORMETHIAZIDE [Concomitant]
  7. ALLOPURINOL [Concomitant]
  8. WARFARIN (WARFARIN POTASSIUM) [Concomitant]

REACTIONS (3)
  - ALDOLASE INCREASED [None]
  - BLOOD CREATINE PHOSPHOKINASE MB INCREASED [None]
  - RHABDOMYOLYSIS [None]
